FAERS Safety Report 8357136-2 (Version None)
Quarter: 2012Q2

REPORT INFORMATION
  Report Type: 
  Country: None (occurrence: None)
  Receive Date: 20120514
  Receipt Date: 20120507
  Transmission Date: 20120825
  Serious: Yes (Hospitalization)
  Sender: FDA-Public Use
  Company Number: US-BAYER-2012-023562

PATIENT
  Age: 32 Year
  Sex: Female
  Weight: 106.8 kg

DRUGS (7)
  1. GLUCOPHAGE [Concomitant]
  2. NORDETTE-21 [Concomitant]
     Dosage: DAILY
     Route: 048
  3. YAZ [Suspect]
     Indication: PRODUCT USED FOR UNKNOWN INDICATION
     Dosage: UNK
     Dates: start: 20071001, end: 20080301
  4. BENICAR HCT [Concomitant]
     Dosage: 2CC/12.5 MG QD
     Route: 048
  5. SYNTHROID [Concomitant]
  6. SINGULAIR [Concomitant]
     Dosage: 10 MG, ONCE
     Route: 048
  7. ZOLOFT [Concomitant]
     Dosage: 25 MG, ONCE
     Route: 048

REACTIONS (7)
  - EMOTIONAL DISTRESS [None]
  - DEEP VEIN THROMBOSIS [None]
  - GENERAL PHYSICAL HEALTH DETERIORATION [None]
  - INJURY [None]
  - ANXIETY [None]
  - PAIN [None]
  - PAIN IN EXTREMITY [None]
